FAERS Safety Report 5604552-5 (Version None)
Quarter: 2008Q1

REPORT INFORMATION
  Report Type: 
  Country: None (occurrence: None)
  Receive Date: 20080124
  Receipt Date: 20080124
  Transmission Date: 20080703
  Serious: Yes (Other)
  Sender: FDA-Public Use
  Company Number: None

PATIENT
  Age: 77 Year
  Sex: Female
  Weight: 70.7611 kg

DRUGS (1)
  1. ZETIA [Suspect]
     Indication: HYPERLIPIDAEMIA
     Dosage: PER DAY PO
     Route: 048
     Dates: start: 20050910, end: 20080123

REACTIONS (2)
  - CAROTID ARTERY STENOSIS [None]
  - FIBROMUSCULAR DYSPLASIA [None]
